FAERS Safety Report 8815237 (Version 2)
Quarter: 2012Q4

REPORT INFORMATION
  Report Type: 
  Country: US (occurrence: US)
  Receive Date: 20120928
  Receipt Date: 20121002
  Transmission Date: 20130627
  Serious: Yes (Other)
  Sender: FDA-Public Use
  Company Number: US-TEVA-360813USA

PATIENT
  Sex: Female

DRUGS (1)
  1. COPAXONE [Suspect]
     Indication: MULTIPLE SCLEROSIS
     Dates: start: 20081024

REACTIONS (3)
  - Injection site ulcer [Not Recovered/Not Resolved]
  - Wrong technique in drug usage process [Unknown]
  - Injection site discolouration [Unknown]
